FAERS Safety Report 20075158 (Version 8)
Quarter: 2025Q1

REPORT INFORMATION
  Report Type: Spontaneous
  Country: US (occurrence: US)
  Receive Date: 20211116
  Receipt Date: 20250203
  Transmission Date: 20250409
  Serious: Yes (Other)
  Sender: BRISTOL-MYERS SQUIBB COMPANY
  Company Number: US-BRISTOL-MYERS SQUIBB COMPANY-BMS-2021-120340

PATIENT
  Age: 61 Year
  Sex: Female

DRUGS (5)
  1. ORENCIA [Suspect]
     Active Substance: ABATACEPT
     Indication: Rheumatoid arthritis
     Dosage: 125 MILLIGRAM, QWK
     Route: 058
     Dates: start: 20210928
  2. ORENCIA [Suspect]
     Active Substance: ABATACEPT
     Route: 058
  3. ORENCIA [Suspect]
     Active Substance: ABATACEPT
     Route: 058
  4. ORENCIA [Suspect]
     Active Substance: ABATACEPT
     Route: 058
  5. ORENCIA [Suspect]
     Active Substance: ABATACEPT
     Route: 058

REACTIONS (9)
  - Neuropathy peripheral [Unknown]
  - Weight increased [Not Recovered/Not Resolved]
  - Mental status changes [Unknown]
  - Plantar fasciitis [Not Recovered/Not Resolved]
  - Fatigue [Recovering/Resolving]
  - Dyspepsia [Unknown]
  - Depression [Unknown]
  - Dyspnoea [Unknown]
  - Arthritis [Unknown]

NARRATIVE: CASE EVENT DATE: 20211001
